FAERS Safety Report 23222425 (Version 1)
Quarter: 2023Q4

REPORT INFORMATION
  Report Type: Spontaneous
  Country: US (occurrence: US)
  Receive Date: 20231123
  Receipt Date: 20231123
  Transmission Date: 20240110
  Serious: Yes (Hospitalization, Other)
  Sender: FDA-Public Use
  Company Number: US-CIPLA LTD.-2023US07241

PATIENT

DRUGS (2)
  1. TESTOSTERONE [Suspect]
     Active Substance: TESTOSTERONE
     Indication: Product used for unknown indication
     Dosage: UNK 500 MILLIGRAM, WEEKLY INJECTION (USE FOR TEN YEARS)
     Route: 030
  2. TESTOSTERONE [Suspect]
     Active Substance: TESTOSTERONE
     Dosage: UNK, (USE FOR TEN YEARS)
     Route: 048

REACTIONS (5)
  - Adrenal haemorrhage [Unknown]
  - Abdominal distension [Unknown]
  - Intentional product misuse [Unknown]
  - Venous thrombosis [Unknown]
  - Primary adrenal insufficiency [Unknown]
